FAERS Safety Report 8830015 (Version 1)
Quarter: 2012Q4

REPORT INFORMATION
  Report Type: 
  Country: US (occurrence: US)
  Receive Date: 20121008
  Receipt Date: 20121008
  Transmission Date: 20130627
  Serious: Yes (Death)
  Sender: FDA-Public Use
  Company Number: US-ROCHE-1130649

PATIENT
  Sex: Female

DRUGS (15)
  1. RITUXAN [Suspect]
     Indication: NEPHRITIS
     Route: 042
     Dates: start: 20070919, end: 20071017
  2. RITUXAN [Suspect]
     Indication: NEPHROPATHY
  3. RITUXAN [Suspect]
     Indication: OFF LABEL USE
  4. RITUXAN [Suspect]
     Indication: GLOMERULONEPHRITIS MEMBRANOUS
  5. PLAVIX [Concomitant]
  6. EFFEXOR XR [Concomitant]
  7. SYNTHROID [Concomitant]
  8. SENNA [Concomitant]
  9. AMBIEN [Concomitant]
  10. DETROL LA [Concomitant]
  11. DILTIAZEM [Concomitant]
  12. LISINOPRIL [Concomitant]
  13. LASIX [Concomitant]
  14. CENTRUM SILVER [Concomitant]
  15. MEGACE [Concomitant]

REACTIONS (1)
  - Glomerulonephritis membranous [Fatal]
